FAERS Safety Report 5157245-5 (Version None)
Quarter: 2006Q4

REPORT INFORMATION
  Report Type: 
  Country: None (occurrence: None)
  Receive Date: 20061115
  Receipt Date: 20061103
  Transmission Date: 20070319
  Serious: Yes (Other)
  Sender: FDA-Public Use
  Company Number: GXKR2006US07087

PATIENT
  Sex: Female

DRUGS (2)
  1. FLECAINIDE (NGX) (FLECAINIDE) [Suspect]
     Indication: TACHYCARDIA FOETAL
     Dosage: 100 MG, TID,
  2. DIGOXIN [Suspect]
     Indication: TACHYCARDIA FOETAL
     Dosage: ORAL
     Route: 048

REACTIONS (6)
  - CAESAREAN SECTION [None]
  - DRUG EXPOSURE DURING PREGNANCY [None]
  - ELECTROCARDIOGRAM QRS COMPLEX PROLONGED [None]
  - ELECTROCARDIOGRAM QT CORRECTED INTERVAL PROLONGED [None]
  - PRE-ECLAMPSIA [None]
  - PREMATURE LABOUR [None]
